FAERS Safety Report 4768371-4 (Version None)
Quarter: 2005Q3

REPORT INFORMATION
  Report Type: 
  Country: None (occurrence: None)
  Receive Date: 20050906
  Receipt Date: 20050720
  Transmission Date: 20060218
  Serious: No
  Sender: FDA-Public Use
  Company Number: 2005-BP-12268BP

PATIENT
  Age: 74 Year
  Sex: Male

DRUGS (17)
  1. SPIRIVA [Suspect]
     Indication: CHRONIC OBSTRUCTIVE PULMONARY DISEASE
     Dosage: 18 MCG (18 MCG , QD), IH
     Route: 055
     Dates: start: 20050501
  2. ALBUTEROL [Suspect]
     Indication: CHRONIC OBSTRUCTIVE PULMONARY DISEASE
  3. FLOVENT [Suspect]
     Indication: CHRONIC OBSTRUCTIVE PULMONARY DISEASE
  4. FLOVENT [Suspect]
     Indication: CHRONIC OBSTRUCTIVE PULMONARY DISEASE
  5. NASACORT [Suspect]
  6. FUROSEMIDE [Concomitant]
  7. CENTRUM SILVER (CENTRUM SILVER) [Concomitant]
  8. FISH OIL (FISH OIL) [Concomitant]
  9. METFORMIN HCL [Concomitant]
  10. INDAPAMDE [Concomitant]
  11. DIGOXIN [Concomitant]
  12. LIPITOR [Concomitant]
  13. ALLEGRA [Concomitant]
  14. VIAGRA [Concomitant]
  15. LOPID [Concomitant]
  16. LISINOPRIL [Concomitant]
  17. SPIRIVA [Suspect]

REACTIONS (5)
  - ASTHMA [None]
  - DISTURBANCE IN ATTENTION [None]
  - INSOMNIA [None]
  - NASAL CONGESTION [None]
  - NERVOUSNESS [None]
